FAERS Safety Report 11104312 (Version 1)
Quarter: 2015Q2

REPORT INFORMATION
  Report Type: Spontaneous
  Country: IT (occurrence: IT)
  Receive Date: 20150511
  Receipt Date: 20150511
  Transmission Date: 20150821
  Serious: Yes (Other)
  Sender: FDA-Public Use
  Company Number: IT-CIPLA LTD.-2015IT03616

PATIENT

DRUGS (9)
  1. CITALOPRAM [Suspect]
     Active Substance: CITALOPRAM HYDROBROMIDE
     Indication: PRODUCT USED FOR UNKNOWN INDICATION
  2. ESCITALOPRAM [Suspect]
     Active Substance: ESCITALOPRAM OXALATE
     Indication: PRODUCT USED FOR UNKNOWN INDICATION
  3. SERTRALINE [Suspect]
     Active Substance: SERTRALINE HYDROCHLORIDE
     Indication: DEPRESSION
     Dosage: 100 MG, QD
  4. TOPIRAMATE. [Suspect]
     Active Substance: TOPIRAMATE
     Dosage: 400 MG, QD
  5. BUPROPION XL [Suspect]
     Active Substance: BUPROPION
     Dosage: 300 MG DAILY
  6. FLUOXETINE [Suspect]
     Active Substance: FLUOXETINE\FLUOXETINE HYDROCHLORIDE
     Indication: DEPRESSION
     Dosage: 20 MG, QD
  7. BUPROPION XL [Suspect]
     Active Substance: BUPROPION
     Indication: EATING DISORDER
     Dosage: 150 MG DAILY
  8. TOPIRAMATE. [Suspect]
     Active Substance: TOPIRAMATE
     Indication: EATING DISORDER
     Dosage: 50 MG, QD
  9. VENLAFAXINE [Suspect]
     Active Substance: VENLAFAXINE HYDROCHLORIDE
     Indication: PRODUCT USED FOR UNKNOWN INDICATION

REACTIONS (12)
  - Weight loss poor [Unknown]
  - Hyperhidrosis [Unknown]
  - Depressed mood [None]
  - Headache [Unknown]
  - Binge eating [Recovered/Resolved]
  - Drug ineffective [Unknown]
  - Gastrointestinal disorder [Unknown]
  - Food craving [None]
  - Frustration [Unknown]
  - Anxiety [Unknown]
  - Tremor [Unknown]
  - Irritability [Unknown]
